FAERS Safety Report 18305362 (Version 1)
Quarter: 2020Q3

REPORT INFORMATION
  Report Type: Spontaneous
  Country: US (occurrence: US)
  Receive Date: 20200916
  Receipt Date: 20200916
  Transmission Date: 20201103
  Serious: Yes (Other)
  Sender: FDA-Public Use
  Company Number: None

PATIENT
  Age: 8 Decade
  Sex: Male

DRUGS (6)
  1. DOXYCYCLINE. [Suspect]
     Active Substance: DOXYCYCLINE
  2. VANCOMYCIN [Suspect]
     Active Substance: VANCOMYCIN
     Indication: COVID-19
     Dates: start: 2020
  3. OSELTAMIVIR [Suspect]
     Active Substance: OSELTAMIVIR
  4. CEFTRIAXONE. [Suspect]
     Active Substance: CEFTRIAXONE
  5. MEROPENEM. [Suspect]
     Active Substance: MEROPENEM
  6. LOPINAVIR?RITONAVIR [Suspect]
     Active Substance: LOPINAVIR\RITONAVIR

REACTIONS (3)
  - Product use in unapproved indication [None]
  - Acute respiratory distress syndrome [None]
  - Pyrexia [None]
